FAERS Safety Report 5885642-9 (Version None)
Quarter: 2008Q3

REPORT INFORMATION
  Report Type: 
  Country: None (occurrence: None)
  Receive Date: 20080912
  Receipt Date: 20080902
  Transmission Date: 20090109
  Serious: Yes (Hospitalization)
  Sender: FDA-Public Use
  Company Number: GXKR2008GB08407

PATIENT
  Age: 56 Year
  Sex: Female

DRUGS (3)
  1. OLANZAPINE [Suspect]
     Dosage: ORAL; 15 MG, ORAL
     Route: 048
  2. CITALOPRAM HYDROBROMIDE [Suspect]
     Dosage: 80 MG, ONCE/SINGLE, ORAL; 40 MG, ORAL
     Route: 048
  3. LITHIUM CARBONATE [Suspect]
     Dosage: ORAL,  600 MG, ORAL
     Route: 048

REACTIONS (7)
  - BODY TEMPERATURE INCREASED [None]
  - COMA [None]
  - OVERDOSE [None]
  - RESPIRATORY DEPRESSION [None]
  - TACHYCARDIA [None]
  - THERAPEUTIC AGENT TOXICITY [None]
  - UNRESPONSIVE TO STIMULI [None]
